FAERS Safety Report 20710878 (Version 1)
Quarter: 2022Q2

REPORT INFORMATION
  Report Type: Spontaneous
  Country: US (occurrence: US)
  Receive Date: 20220414
  Receipt Date: 20220414
  Transmission Date: 20220720
  Serious: Yes (Other)
  Sender: FDA-Public Use
  Company Number: US-ABBVIE-22K-163-4359394-00

PATIENT
  Sex: Female

DRUGS (1)
  1. HUMIRA [Suspect]
     Active Substance: ADALIMUMAB
     Indication: Crohn^s disease
     Route: 058

REACTIONS (7)
  - Foreign body ingestion [Unknown]
  - Embedded device [Unknown]
  - Colon cancer [Unknown]
  - Gastrointestinal inflammation [Unknown]
  - Faeces discoloured [Unknown]
  - Dementia [Unknown]
  - Unevaluable event [Unknown]
